FAERS Safety Report 10881295 (Version 1)
Quarter: 2015Q1

REPORT INFORMATION
  Report Type: Spontaneous
  Country: US (occurrence: US)
  Receive Date: 20150303
  Receipt Date: 20150303
  Transmission Date: 20150721
  Serious: Yes (Death)
  Sender: FDA-Public Use
  Company Number: US-BANPHARM-20153573

PATIENT
  Age: 45 Year
  Sex: Male

DRUGS (6)
  1. PHENOTHIAZINE [Suspect]
     Active Substance: PHENOTHIAZINE
  2. OXYCODONE [Suspect]
     Active Substance: OXYCODONE
  3. THIORIDAZINE [Suspect]
     Active Substance: THIORIDAZINE
  4. ETHANOL [Suspect]
     Active Substance: ALCOHOL
  5. DIPHENHYDRAMINE UNKNOWN PRODUCT [Suspect]
     Active Substance: DIPHENHYDRAMINE
  6. MORPHINE [Suspect]
     Active Substance: MORPHINE

REACTIONS (1)
  - Drug abuse [Fatal]
